FAERS Safety Report 20815962 (Version 2)
Quarter: 2024Q2

REPORT INFORMATION
  Report Type: Report from Study
  Country: CA (occurrence: CA)
  Receive Date: 20220511
  Receipt Date: 20240516
  Transmission Date: 20240716
  Serious: Yes (Other)
  Sender: FDA-Public Use
  Company Number: CA-BAUSCH-BL-2022-011421

PATIENT
  Age: 64 Year
  Sex: Male

DRUGS (3)
  1. SILIQ [Suspect]
     Active Substance: BRODALUMAB
     Indication: Psoriasis
     Dosage: 210 MG / 1.5 ML, WEEKLY (WEEK 0-2)
     Route: 058
     Dates: start: 20210714, end: 20210729
  2. SILIQ [Suspect]
     Active Substance: BRODALUMAB
     Dosage: 210 MG / 1.5 ML, Q 2 WEEKS
     Route: 058
     Dates: start: 20220421
  3. SILIQ [Suspect]
     Active Substance: BRODALUMAB
     Dosage: 210 MG / 1.5 ML, Q 2 WEEKS
     Route: 058
     Dates: start: 20240425

REACTIONS (2)
  - Blood pressure increased [Unknown]
  - White coat hypertension [Unknown]

NARRATIVE: CASE EVENT DATE: 20220505
